FAERS Safety Report 6711196-0 (Version None)
Quarter: 2010Q2

REPORT INFORMATION
  Report Type: 
  Country: None (occurrence: None)
  Receive Date: 20100505
  Receipt Date: 20100427
  Transmission Date: 20101027
  Serious: Yes (Hospitalization, Other)
  Sender: FDA-Public Use
  Company Number: BR-ELI_LILLY_AND_COMPANY-BR201004007656

PATIENT
  Sex: Female
  Weight: 72 kg

DRUGS (14)
  1. BYETTA [Suspect]
     Indication: TYPE 2 DIABETES MELLITUS
     Dosage: 5 UG, UNKNOWN
     Route: 058
  2. BYETTA [Suspect]
     Dosage: 10 UG, UNKNOWN
     Route: 058
  3. ASPIRIN [Concomitant]
     Indication: INFARCTION
     Dosage: UNK, DAILY (1/D)
     Route: 065
  4. CLOPIDOGREL [Concomitant]
     Indication: INFARCTION
     Dosage: UNK, DAILY (1/D)
     Route: 065
  5. CARDIZEM [Concomitant]
     Indication: INFARCTION
     Dosage: UNK, DAILY (1/D)
     Route: 065
  6. DIOVAN AMLO [Concomitant]
     Indication: HYPERTENSION
     Dosage: UNK, DAILY (1/D)
     Route: 065
  7. CLORANA [Concomitant]
     Indication: HYPERTENSION
     Dosage: UNK, DAILY (1/D)
     Route: 065
  8. DIAMICRON [Concomitant]
     Indication: DIABETES MELLITUS
     Dosage: UNK, DAILY (1/D)
     Route: 065
  9. PURAN T4 [Concomitant]
     Indication: HYPOTHYROIDISM
     Dosage: UNK, DAILY (1/D)
     Route: 065
  10. RANITIDINE HYDROCHLORIDE [Concomitant]
     Indication: ASTHMA
     Dosage: UNK, DAILY (1/D)
     Route: 065
  11. SERETIDE [Concomitant]
     Indication: SYSTEMIC LUPUS ERYTHEMATOSUS
     Dosage: UNK, DAILY (1/D)
     Route: 065
  12. CHLOROQUINE DIPHOSPHATE [Concomitant]
     Indication: SYSTEMIC LUPUS ERYTHEMATOSUS
     Dosage: UNK, DAILY (1/D)
     Route: 065
  13. ARAVA [Concomitant]
     Indication: ARTHRITIS
     Dosage: UNK, DAILY (1/D)
     Route: 065
  14. ENDOFOLIN [Concomitant]
     Indication: ARTHRITIS
     Dosage: UNK, DAILY (1/D)
     Route: 065

REACTIONS (1)
  - MYOCARDIAL INFARCTION [None]
